FAERS Safety Report 5569640-0 (Version None)
Quarter: 2007Q4

REPORT INFORMATION
  Report Type: 
  Country: None (occurrence: None)
  Receive Date: 20071220
  Receipt Date: 20071217
  Transmission Date: 20080405
  Serious: Yes (Other)
  Sender: FDA-Public Use
  Company Number: A0691735A

PATIENT
  Age: 67 Year
  Sex: Male
  Weight: 89.1 kg

DRUGS (3)
  1. REQUIP [Suspect]
     Indication: RESTLESS LEGS SYNDROME
     Route: 048
     Dates: start: 20070701
  2. NEORAL [Suspect]
     Indication: HEART TRANSPLANT
     Dosage: 125U PER DAY
     Route: 048
     Dates: start: 20000204
  3. CELLCEPT [Concomitant]
     Indication: HEART TRANSPLANT
     Dosage: 500U TWICE PER DAY
     Route: 048
     Dates: start: 20000204

REACTIONS (3)
  - BLOOD CREATININE INCREASED [None]
  - BLOOD UREA INCREASED [None]
  - THERAPEUTIC RESPONSE DECREASED [None]
